FAERS Safety Report 20946778 (Version 1)
Quarter: 2022Q2

REPORT INFORMATION
  Report Type: Spontaneous
  Country: US (occurrence: US)
  Receive Date: 20220610
  Receipt Date: 20220610
  Transmission Date: 20220721
  Serious: Yes (Other)
  Sender: FDA-Public Use
  Company Number: US-AMGEN-USASP2022095104

PATIENT
  Age: 87 Year
  Sex: Female

DRUGS (6)
  1. PARSABIV [Suspect]
     Active Substance: ETELCALCETIDE HYDROCHLORIDE
     Indication: Hyperparathyroidism secondary
     Dosage: 2.5 MILLIGRAM, Q2WK
     Route: 065
     Dates: start: 20200516
  2. PARSABIV [Suspect]
     Active Substance: ETELCALCETIDE HYDROCHLORIDE
     Dosage: 5 MILLIGRAM, 2 TIMES/WK
     Route: 065
     Dates: start: 20200620
  3. PARSABIV [Suspect]
     Active Substance: ETELCALCETIDE HYDROCHLORIDE
     Dosage: 7.5 MILLIGRAM, 2 TIMES/WK
     Route: 065
     Dates: start: 20200725
  4. PARSABIV [Suspect]
     Active Substance: ETELCALCETIDE HYDROCHLORIDE
     Dosage: 5 MILLIGRAM, 2 TIMES/WK
     Route: 065
     Dates: start: 20200822
  5. PARSABIV [Suspect]
     Active Substance: ETELCALCETIDE HYDROCHLORIDE
     Dosage: 7.5 MILLIGRAM, 2 TIMES/WK
     Route: 065
     Dates: start: 20210119
  6. PARSABIV [Suspect]
     Active Substance: ETELCALCETIDE HYDROCHLORIDE
     Dosage: 5 MILLIGRAM, 2 TIMES/WK
     Route: 065
     Dates: start: 20210227

REACTIONS (5)
  - Dialysis [Unknown]
  - Dysgeusia [Not Recovered/Not Resolved]
  - Off label use [Unknown]
  - Urinary tract disorder [Unknown]
  - Nausea [Not Recovered/Not Resolved]

NARRATIVE: CASE EVENT DATE: 20200516
